FAERS Safety Report 5216936-8 (Version None)
Quarter: 2007Q1

REPORT INFORMATION
  Report Type: 
  Country: None (occurrence: None)
  Receive Date: 20070124
  Receipt Date: 20070110
  Transmission Date: 20070707
  Serious: Yes (Other)
  Sender: FDA-Public Use
  Company Number: US-JNJFOC-20070102547

PATIENT
  Sex: Female
  Weight: 102.06 kg

DRUGS (14)
  1. DURAGESIC-100 [Suspect]
     Indication: PAIN
     Route: 062
  2. PREDNISONE TAB [Suspect]
     Indication: ASTHMA
     Route: 048
  3. NEURONTIN [Suspect]
     Indication: PAIN
     Dosage: 3 IN 24 HOURS AS NEEDED
     Route: 048
  4. ACTOS PLUS [Concomitant]
     Indication: DIABETES MELLITUS
     Route: 048
  5. PREMARIN [Concomitant]
     Indication: THYROID FUNCTION TEST ABNORMAL
     Route: 048
  6. SYNTHROID [Concomitant]
     Indication: THYROID FUNCTION TEST ABNORMAL
     Route: 048
  7. ACIPHEX [Concomitant]
     Indication: GASTROINTESTINAL DISORDER
     Route: 048
  8. DIOVAN [Concomitant]
     Indication: HYPERTENSION
     Route: 048
  9. LIPITOR [Concomitant]
  10. LASIX [Concomitant]
  11. SINGULAIR [Concomitant]
  12. PROVENTIL [Concomitant]
  13. XANAX [Concomitant]
  14. METHADONE [Concomitant]

REACTIONS (9)
  - DYSPNOEA [None]
  - HEART RATE DECREASED [None]
  - HYPERHIDROSIS [None]
  - HYPERTENSION [None]
  - MOBILITY DECREASED [None]
  - PAIN [None]
  - PERICARDIAL EFFUSION [None]
  - SOMNOLENCE [None]
  - WEIGHT INCREASED [None]
